FAERS Safety Report 16187140 (Version 1)
Quarter: 2019Q2

REPORT INFORMATION
  Report Type: Spontaneous
  Country: FR (occurrence: FR)
  Receive Date: 20190411
  Receipt Date: 20190411
  Transmission Date: 20190711
  Serious: Yes (Other)
  Sender: FDA-Public Use
  Company Number: FR-009507513-1904FRA002553

PATIENT
  Sex: Female

DRUGS (2)
  1. CELESTENE (BETAMETHASONE) [Suspect]
     Active Substance: BETAMETHASONE
     Indication: ASTHMA
     Dosage: 1 TABLET, PRN
     Route: 048
  2. VENTOLINE (ALBUTEROL SULFATE) [Concomitant]
     Active Substance: ALBUTEROL SULFATE
     Indication: ASTHMA
     Dosage: UNK

REACTIONS (4)
  - Abdominal pain [Not Recovered/Not Resolved]
  - Product availability issue [Unknown]
  - Thyroid cancer [Unknown]
  - Thyroidectomy [Unknown]

NARRATIVE: CASE EVENT DATE: 2012
